FAERS Safety Report 7508750-5 (Version None)
Quarter: 2011Q2

REPORT INFORMATION
  Report Type: 
  Country: None (occurrence: None)
  Receive Date: 20110527
  Receipt Date: 20101213
  Transmission Date: 20111010
  Serious: No
  Sender: FDA-Public Use
  Company Number: A0899561A

PATIENT
  Age: 28 Year
  Sex: Male

DRUGS (3)
  1. MUCINEX [Concomitant]
  2. ZITHROMAX [Concomitant]
  3. VENTOLIN [Suspect]
     Dosage: 2PUFF SIX TIMES PER DAY
     Route: 055
     Dates: start: 20101122

REACTIONS (1)
  - DRUG SCREEN POSITIVE [None]
